FAERS Safety Report 8144887-8 (Version None)
Quarter: 2012Q1

REPORT INFORMATION
  Report Type: 
  Country: None (occurrence: None)
  Receive Date: 20120217
  Receipt Date: 20120131
  Transmission Date: 20120608
  Serious: Yes (Other)
  Sender: FDA-Public Use
  Company Number: ES-GLAXOSMITHKLINE-B0779529A

PATIENT
  Age: 28 Year
  Sex: Male

DRUGS (1)
  1. VOTRIENT [Suspect]
     Indication: SYNOVIAL SARCOMA METASTATIC
     Dosage: 800MG PER DAY
     Route: 048
     Dates: end: 20120201

REACTIONS (3)
  - ACCOMMODATION DISORDER [None]
  - VISION BLURRED [None]
  - SYNOVIAL SARCOMA METASTATIC [None]
